FAERS Safety Report 4864284-8 (Version None)
Quarter: 2005Q4

REPORT INFORMATION
  Report Type: 
  Country: None (occurrence: None)
  Receive Date: 20051220
  Receipt Date: 20051220
  Transmission Date: 20060501
  Serious: Yes (Hospitalization)
  Sender: FDA-Public Use
  Company Number: None

PATIENT
  Age: 44 Year
  Sex: Male
  Weight: 100.2449 kg

DRUGS (1)
  1. XOLAIR [Suspect]
     Indication: ASTHMA
     Dosage: 300MG SQ
     Route: 058
     Dates: start: 20051214

REACTIONS (2)
  - STATUS MIGRAINOSUS [None]
  - THERAPY NON-RESPONDER [None]
